FAERS Safety Report 5316928-4 (Version None)
Quarter: 2007Q2

REPORT INFORMATION
  Report Type: 
  Country: None (occurrence: None)
  Receive Date: 20070504
  Receipt Date: 20070424
  Transmission Date: 20071010
  Serious: Yes (Hospitalization, Other)
  Sender: FDA-Public Use
  Company Number: US-ELI_LILLY_AND_COMPANY-US200703003789

PATIENT
  Age: 75 Year
  Sex: Male

DRUGS (19)
  1. FORTEO [Suspect]
     Indication: OSTEOPOROSIS
     Dosage: 20 UG, DAILY (1/D)
     Dates: start: 20060425, end: 20061201
  2. FORTEO [Suspect]
     Dosage: 20 UG, DAILY (1/D)
     Dates: start: 20061201, end: 20070101
  3. FORTEO [Suspect]
     Dosage: 20 UG, DAILY (1/D)
     Dates: start: 20070101
  4. PREDNISONE TAB [Concomitant]
     Indication: RHEUMATOID ARTHRITIS
     Dosage: 5 MG, 2/D
  5. LORTAB [Concomitant]
     Dosage: 5 MG, 4/D
     Route: 048
  6. LORTAB [Concomitant]
     Dosage: 500 MG, 4/D
     Route: 048
  7. NEURONTIN [Concomitant]
     Dosage: 300 MG, 3/D
     Route: 048
  8. ELAVIL [Concomitant]
     Dosage: 100 MG, DAILY (1/D)
     Route: 048
  9. AMBIEN [Concomitant]
     Dosage: 5 MG, EACH EVENING
     Route: 048
  10. ASPIRIN [Concomitant]
     Dosage: 81 MG, DAILY (1/D)
     Route: 048
  11. VALIUM [Concomitant]
     Indication: AGITATION
     Dosage: 5 MG, AS NEEDED
  12. TOPROL-XL [Concomitant]
     Dosage: 50 MG, DAILY (1/D)
     Route: 048
  13. METHOTREXATE [Concomitant]
     Dosage: 2.5 MG, WEEKLY (1/W)
  14. ENBREL [Concomitant]
     Dosage: 50 MG, WEEKLY (1/W)
     Route: 058
  15. FOLIC ACID [Concomitant]
     Dosage: 1 MG, DAILY (1/D)
     Route: 048
  16. MULTI-VITAMIN [Concomitant]
     Dosage: UNK, DAILY (1/D)
  17. GLIPIZIDE [Concomitant]
     Dosage: 5 MG, DAILY (1/D)
     Route: 048
  18. LOPID [Concomitant]
     Dosage: 600 MG, 2/D
     Route: 048
  19. REGLAN [Concomitant]
     Dosage: 5 MG, 3/D
     Route: 048

REACTIONS (13)
  - ASTHENIA [None]
  - BRONCHITIS [None]
  - DEMENTIA [None]
  - FALL [None]
  - FOOT FRACTURE [None]
  - HYPERTENSION [None]
  - INFLUENZA [None]
  - LOSS OF CONSCIOUSNESS [None]
  - MOBILITY DECREASED [None]
  - NEUROPATHY [None]
  - STOMACH DISCOMFORT [None]
  - VISUAL ACUITY REDUCED [None]
  - VOMITING [None]
